FAERS Safety Report 11276600 (Version 6)
Quarter: 2016Q2

REPORT INFORMATION
  Report Type: Report from Study
  Country: DE (occurrence: CO)
  Receive Date: 20150716
  Receipt Date: 20160628
  Transmission Date: 20160815
  Serious: Yes (Other)
  Sender: FDA-Public Use
  Company Number: DE-ACTELION-A-US2015-120997

PATIENT
  Age: 48 Year
  Sex: Female

DRUGS (2)
  1. VENTAVIS [Suspect]
     Active Substance: ILOPROST
     Indication: PULMONARY HYPERTENSION
     Dosage: 5 MCG,
     Route: 055
  2. VENTAVIS [Suspect]
     Active Substance: ILOPROST
     Dosage: 4 DF, QD
     Route: 055
     Dates: start: 20090220

REACTIONS (10)
  - Intentional product misuse [Not Recovered/Not Resolved]
  - Asphyxia [Recovered/Resolved]
  - Product use issue [Not Recovered/Not Resolved]
  - Oral pain [Unknown]
  - Tooth extraction [Unknown]
  - Oral discomfort [Unknown]
  - Procedural pain [Not Recovered/Not Resolved]
  - Speech disorder [Unknown]
  - Nasal discomfort [Unknown]
  - Product use issue [Not Recovered/Not Resolved]

NARRATIVE: CASE EVENT DATE: 20150708
